FAERS Safety Report 11910634 (Version 1)
Quarter: 2016Q1

REPORT INFORMATION
  Report Type: Spontaneous
  Country: US (occurrence: None)
  Receive Date: 20160111
  Receipt Date: 20160111
  Transmission Date: 20160526
  Serious: Yes (Death)
  Sender: FDA-Public Use
  Company Number: None

PATIENT
  Age: 75 Year
  Sex: Female

DRUGS (1)
  1. FRAGMIN [Suspect]
     Active Substance: DALTEPARIN SODIUM
     Indication: RENAL VESSEL DISORDER
     Route: 058
     Dates: start: 20110307, end: 201512

REACTIONS (1)
  - Death [None]

NARRATIVE: CASE EVENT DATE: 20151214
